FAERS Safety Report 7099653-1 (Version None)
Quarter: 2010Q4

REPORT INFORMATION
  Report Type: 
  Country: None (occurrence: None)
  Receive Date: 20101112
  Receipt Date: 20101109
  Transmission Date: 20110411
  Serious: Yes (Other)
  Sender: FDA-Public Use
  Company Number: AU-PFIZER INC-2010133432

PATIENT
  Age: 40 Year
  Sex: Female

DRUGS (3)
  1. NEURONTIN [Suspect]
     Indication: NEURALGIA
     Dosage: 100 MG, 1X/DAY
     Route: 048
     Dates: start: 20100912
  2. NEURONTIN [Suspect]
     Dosage: 100 MG, 3X/DAY
     Route: 048
  3. NEURONTIN [Suspect]
     Dosage: 200 MG, 3X/DAY
     Route: 048
     Dates: end: 20101011

REACTIONS (7)
  - CHEST PAIN [None]
  - DYSPNOEA [None]
  - ELECTROCARDIOGRAM ST SEGMENT ELEVATION [None]
  - FATIGUE [None]
  - PAIN [None]
  - PALPITATIONS [None]
  - PERICARDITIS [None]
